FAERS Safety Report 4784845-4 (Version None)
Quarter: 2005Q3

REPORT INFORMATION
  Report Type: 
  Country: None (occurrence: None)
  Receive Date: 20050930
  Receipt Date: 20050919
  Transmission Date: 20060218
  Serious: Yes (Other)
  Sender: FDA-Public Use
  Company Number: PHBS2005US13796

PATIENT
  Age: 3 Year
  Sex: Male

DRUGS (3)
  1. CARBAMAZEPINE [Suspect]
     Route: 065
  2. METHYLPHENIDATE HCL [Suspect]
     Route: 065
  3. VALPROIC ACID [Suspect]
     Route: 065

REACTIONS (3)
  - BONE MARROW DEPRESSION [None]
  - DRUG INEFFECTIVE [None]
  - WEIGHT INCREASED [None]
